FAERS Safety Report 11790478 (Version 1)
Quarter: 2015Q4

REPORT INFORMATION
  Report Type: Spontaneous
  Country: NL (occurrence: NL)
  Receive Date: 20151201
  Receipt Date: 20151201
  Transmission Date: 20160305
  Serious: Yes (Hospitalization)
  Sender: FDA-Public Use
  Company Number: NL-B.I. PHARMACEUTICALS,INC./RIDGEFIELD-2015-BI-57482NL

PATIENT
  Sex: Male
  Weight: 82 kg

DRUGS (6)
  1. VARGATEF [Suspect]
     Active Substance: NINTEDANIB
     Indication: TARGETED CANCER THERAPY
     Dosage: 400 MG
     Route: 065
  2. VARGATEF [Suspect]
     Active Substance: NINTEDANIB
     Dosage: 300 MG
     Route: 065
     Dates: start: 20150813
  3. OXYCODON [Concomitant]
     Active Substance: OXYCODONE
     Indication: PAIN
     Dosage: DOSE PER APPLICATION:20
     Route: 048
     Dates: start: 20150515
  4. PANTAPROZOL [Concomitant]
     Indication: ABDOMINAL DISCOMFORT
     Dosage: DOSE PER APPLICATION:40
     Route: 048
     Dates: start: 20150515
  5. NAPROXEN. [Concomitant]
     Active Substance: NAPROXEN
     Indication: PAIN
     Dosage: DOSE PER APPLICATION:500
     Route: 048
     Dates: start: 20150515
  6. OXYCODON [Concomitant]
     Active Substance: OXYCODONE
     Route: 048
     Dates: start: 20150515

REACTIONS (1)
  - Skin reaction [Recovered/Resolved with Sequelae]
